FAERS Safety Report 25881988 (Version 1)
Quarter: 2025Q4

REPORT INFORMATION
  Report Type: Spontaneous
  Country: BR (occurrence: BR)
  Receive Date: 20251005
  Receipt Date: 20251005
  Transmission Date: 20260118
  Serious: Yes (Other)
  Sender: BAXTER
  Company Number: BR-BAXTER-2025BAX021525

PATIENT
  Age: 40 Year
  Sex: Female
  Weight: 66 kg

DRUGS (4)
  1. IRON SUCROSE [Suspect]
     Active Substance: IRON SUCROSE
     Indication: Iron deficiency
     Dosage: 2 AMPOULES, THREE TIMES A WEEK DILUTED IN 200 ML OF SALINE SOLUTION 0.9%, INFUSION PERFORMED IN 1 HR
     Route: 042
     Dates: start: 20250801, end: 20250801
  2. SODIUM CHLORIDE [Suspect]
     Active Substance: SODIUM CHLORIDE
     Indication: Medication dilution
     Dosage: 200 ML (INFUSION PERFORMED IN 1 HOUR)
     Route: 042
     Dates: start: 20250801, end: 20250801
  3. ETHINYL ESTRADIOL\GESTODENE [Concomitant]
     Active Substance: ETHINYL ESTRADIOL\GESTODENE
     Indication: Contraception
     Dosage: 1 TABLET A DAY
     Route: 065
  4. FERROUS BISGLYCINATE [Concomitant]
     Active Substance: FERROUS BISGLYCINATE
     Indication: Iron deficiency anaemia
     Dosage: 1 TABLET A DAY
     Route: 048
     Dates: start: 20250720

REACTIONS (2)
  - Back pain [Recovered/Resolved]
  - Pruritus [Recovered/Resolved]

NARRATIVE: CASE EVENT DATE: 20250801
